FAERS Safety Report 20843433 (Version 1)
Quarter: 2022Q2

REPORT INFORMATION
  Report Type: Spontaneous
  Country: US (occurrence: US)
  Receive Date: 20220518
  Receipt Date: 20220518
  Transmission Date: 20220720
  Serious: No
  Sender: FDA-Public Use
  Company Number: US-FERRINGPH-2021FE03541

PATIENT
  Sex: Female

DRUGS (1)
  1. CERVIDIL [Suspect]
     Active Substance: DINOPROSTONE
     Indication: Labour induction
     Dosage: 10 MG, ONCE/SINGLE
     Route: 065
     Dates: start: 20210530

REACTIONS (1)
  - Application site discomfort [Unknown]

NARRATIVE: CASE EVENT DATE: 20210530
